FAERS Safety Report 9643648 (Version 1)
Quarter: 2013Q4

REPORT INFORMATION
  Report Type: Spontaneous
  Country: US (occurrence: None)
  Receive Date: 20131022
  Receipt Date: 20131022
  Transmission Date: 20140711
  Serious: Yes (Hospitalization)
  Sender: FDA-Public Use
  Company Number: 1914155

PATIENT
  Age: 64 Year
  Sex: Female

DRUGS (6)
  1. CARBOPLATIN [Suspect]
     Indication: OVARIAN CANCER
     Route: 042
     Dates: start: 20090408, end: 20090408
  2. PACLITAXEL EBEWE [Suspect]
     Indication: OVARIAN CANCER
     Route: 041
     Dates: start: 20090408, end: 20090408
  3. ZOPHREN [Concomitant]
  4. POLARAMINE [Concomitant]
  5. AZANTAC [Concomitant]
  6. SOLUMEDROL [Concomitant]

REACTIONS (3)
  - Erythema [None]
  - Paraesthesia [None]
  - Nausea [None]
